FAERS Safety Report 7730489-1 (Version None)
Quarter: 2011Q3

REPORT INFORMATION
  Report Type: 
  Country: None (occurrence: None)
  Receive Date: 20110901
  Receipt Date: 20110901
  Transmission Date: 20111222
  Serious: Yes (Hospitalization)
  Sender: FDA-Public Use
  Company Number: None

PATIENT
  Sex: Female
  Weight: 50.9 kg

DRUGS (2)
  1. TOPIRAMATE [Suspect]
     Indication: MIGRAINE
     Dosage: 100 MG TWO PO QHS PO: ON 125MG PO QHS : ON 200MG PO QHS
     Route: 048
     Dates: start: 20110713, end: 20110715
  2. TOPIRAMATE [Suspect]
     Indication: MIGRAINE
     Dosage: 100 MG TWO PO QHS PO: ON 125MG PO QHS : ON 200MG PO QHS
     Route: 048

REACTIONS (3)
  - NEPHROLITHIASIS [None]
  - UROSEPSIS [None]
  - OBSTRUCTIVE UROPATHY [None]
